FAERS Safety Report 5753802-3 (Version None)
Quarter: 2008Q2

REPORT INFORMATION
  Report Type: 
  Country: None (occurrence: None)
  Receive Date: 20080530
  Receipt Date: 20071116
  Transmission Date: 20081010
  Serious: No
  Sender: FDA-Public Use
  Company Number: A0694963A

PATIENT
  Age: 2 Year
  Sex: Female

DRUGS (2)
  1. RETROVIR [Suspect]
     Indication: ANTIVIRAL PROPHYLAXIS
     Dosage: 180MGM2 TWICE PER DAY
     Route: 048
     Dates: start: 20071114
  2. EPIVIR [Concomitant]

REACTIONS (2)
  - DYSARTHRIA [None]
  - SOMNOLENCE [None]
